FAERS Safety Report 19310629 (Version 1)
Quarter: 2021Q2

REPORT INFORMATION
  Report Type: Spontaneous
  Country: IT (occurrence: IT)
  Receive Date: 20210526
  Receipt Date: 20210526
  Transmission Date: 20210717
  Serious: Yes (Hospitalization)
  Sender: FDA-Public Use
  Company Number: IT-ASTRAZENECA-2021A443203

PATIENT
  Age: 76 Year
  Sex: Female
  Weight: 68 kg

DRUGS (3)
  1. BRILIQUE [Suspect]
     Active Substance: TICAGRELOR
     Route: 048
     Dates: start: 20210413, end: 20210507
  2. TIROFIBAN IBISQUS [Suspect]
     Active Substance: TIROFIBAN HYDROCHLORIDE
     Dosage: 250.0ML ONCE/SINGLE ADMINISTRATION
     Route: 042
     Dates: start: 20210413, end: 20210419
  3. OMEPRAZOLE. [Concomitant]
     Active Substance: OMEPRAZOLE
     Dosage: 40.0MG UNKNOWN
     Route: 048
     Dates: start: 20210419, end: 20210510

REACTIONS (3)
  - Thrombocytopenia [Recovering/Resolving]
  - Haemolytic anaemia [Recovering/Resolving]
  - Renal failure [Recovering/Resolving]

NARRATIVE: CASE EVENT DATE: 20210420
